FAERS Safety Report 4832389-3 (Version None)
Quarter: 2005Q4

REPORT INFORMATION
  Report Type: 
  Country: None (occurrence: None)
  Receive Date: 20051121
  Receipt Date: 20051116
  Transmission Date: 20060501
  Serious: Yes (Death)
  Sender: FDA-Public Use
  Company Number: FR-AVENTIS-200513749FR

PATIENT
  Age: 52 Year
  Sex: Female

DRUGS (5)
  1. TAXOTERE [Suspect]
     Indication: LUNG NEOPLASM MALIGNANT
     Route: 042
     Dates: start: 20030915, end: 20050726
  2. TAXOTERE [Suspect]
     Indication: NEOPLASM MALIGNANT
     Route: 042
     Dates: start: 20030915, end: 20050726
  3. ZOMETA [Suspect]
     Indication: METASTASES TO BONE
     Route: 042
     Dates: start: 20030915, end: 20050415
  4. ZOMETA [Suspect]
     Indication: METASTASES TO BONE MARROW
     Route: 042
     Dates: start: 20030915, end: 20050415
  5. IRESSA [Concomitant]

REACTIONS (2)
  - OSTEITIS [None]
  - OSTEONECROSIS [None]
